FAERS Safety Report 7918509-2 (Version None)
Quarter: 2011Q4

REPORT INFORMATION
  Report Type: 
  Country: None (occurrence: None)
  Receive Date: 20111116
  Receipt Date: 20110819
  Transmission Date: 20120403
  Serious: No
  Sender: FDA-Public Use
  Company Number: US-TYCO HEALTHCARE/MALLINCKRODT-T201101087

PATIENT
  Sex: Male

DRUGS (12)
  1. KLONOPIN [Concomitant]
     Dosage: 1 MG, UNK
  2. PROAIR HFA [Concomitant]
  3. FENTANYL [Concomitant]
     Indication: NERVE INJURY
     Dosage: 75 UG/HR EVERY 72 HOURS
     Dates: start: 20100301, end: 20110501
  4. OXYCODONE HCL AND ACETAMINOPHEN [Concomitant]
     Indication: BREAKTHROUGH PAIN
  5. ZESTRIL [Concomitant]
     Dosage: 10 MG, UNK
  6. FENTANYL-100 [Suspect]
     Indication: PAIN
  7. ADVAIR DISKUS 100/50 [Concomitant]
  8. FENTANYL-100 [Suspect]
     Indication: NERVE INJURY
     Dosage: 75 UG/HR, ONE EVERY 72 HOURS
     Route: 062
     Dates: start: 20110511
  9. FENTANYL [Concomitant]
     Indication: PAIN
  10. METOCARBAMOL [Concomitant]
     Dosage: 750 MG, UNK
  11. GABAPENTIN [Concomitant]
     Dosage: 400 MG, UNK
  12. NEXIUM [Concomitant]
     Dosage: 40 UNK, UNK

REACTIONS (3)
  - ASTHENIA [None]
  - DIZZINESS [None]
  - DRUG EFFECT INCREASED [None]
